FAERS Safety Report 8389869 (Version 2)
Quarter: 2012Q4

REPORT INFORMATION
  Report Type: Spontaneous
  Country: DE (occurrence: None)
  Receive Date: 20120120
  Receipt Date: 20120905
  Transmission Date: 20130627
  Serious: Yes (Hospitalization)
  Sender: FDA-Public Use
  Company Number: EU-2012-10005

PATIENT
  Age: 82 Year
  Sex: Male
  Weight: 80 kg

DRUGS (13)
  1. PLETAL [Suspect]
     Indication: PERIPHERAL ARTERIAL OCCLUSIVE DISEASE
     Dates: start: 201106, end: 20110705
  2. BISOPROLOL (BISOPROLOL) [Concomitant]
  3. LAMOTRIGIN (LAMOTRIGIN) [Concomitant]
  4. SIMVABETA (SIMVASTATIN) [Concomitant]
  5. ASS (ACETYLSALICYLIC ACID) [Concomitant]
  6. EXELON (RIVASTIGMINE) [Concomitant]
  7. PIPAMPERON (PIPAMPERONE HYDROCHLORIDE) [Concomitant]
  8. DIGOXIN (DIGOXIN) [Concomitant]
  9. DIOVAN (VALSARTAN) [Concomitant]
  10. VOLTAREN (DICLOFENAC) [Concomitant]
  11. MAGNESIUM (MAGNESIUM) [Concomitant]
  12. LAMICTAL (LAMOTRIGINE) TABLET [Concomitant]
  13. MIRTAZAPIN (MIRTAZAPINE) [Suspect]

REACTIONS (4)
  - Face oedema [None]
  - Localised oedema [None]
  - Weight increased [None]
  - Oedema peripheral [None]
